FAERS Safety Report 9632296 (Version 2)
Quarter: 2013Q4

REPORT INFORMATION
  Report Type: Report from Study
  Country: US (occurrence: US)
  Receive Date: 20131018
  Receipt Date: 20131114
  Transmission Date: 20140711
  Serious: Yes (Hospitalization)
  Sender: FDA-Public Use
  Company Number: US-ACTELION-A-NJ2013-89761

PATIENT
  Age: 7 Year
  Sex: Male

DRUGS (6)
  1. TRACLEER [Suspect]
     Indication: PULMONARY ARTERIAL HYPERTENSION
     Dosage: 62.5 MG, UNK
     Route: 048
  2. REMODULIN [Concomitant]
  3. SILDENAFIL [Concomitant]
  4. ASPIRIN [Concomitant]
     Dosage: 81 MG, UNK
  5. FUROSEMIDE [Concomitant]
     Dosage: 10 MG/DL, UNK
  6. PANTOPRAZOLE [Concomitant]
     Dosage: 20 MG, UNK

REACTIONS (10)
  - Septic shock [Recovering/Resolving]
  - Device related sepsis [Unknown]
  - Blood alkaline phosphatase increased [Unknown]
  - Aspartate aminotransferase increased [Unknown]
  - Pyrexia [Unknown]
  - Staphylococcal infection [Unknown]
  - Pruritus [Unknown]
  - Rash erythematous [Unknown]
  - Catheter site discharge [Unknown]
  - Oxygen saturation decreased [Unknown]
